FAERS Safety Report 25386488 (Version 1)
Quarter: 2025Q2

REPORT INFORMATION
  Report Type: Spontaneous
  Country: US (occurrence: None)
  Receive Date: 20250602
  Receipt Date: 20250602
  Transmission Date: 20250717
  Serious: No
  Sender: FDA-CTU
  Company Number: None

PATIENT
  Age: 82 Year
  Sex: Male

DRUGS (1)
  1. EMPAGLIFLOZIN [Suspect]
     Active Substance: EMPAGLIFLOZIN
     Indication: Diabetes mellitus
     Dosage: FREQUENCY : DAILY;?
     Route: 048
     Dates: end: 20250409

REACTIONS (7)
  - Fungaemia [None]
  - Urinary tract infection [None]
  - Dysuria [None]
  - Culture urine positive [None]
  - Blood culture positive [None]
  - Refusal of treatment by patient [None]
  - Therapy cessation [None]

NARRATIVE: CASE EVENT DATE: 20250318
